FAERS Safety Report 24643755 (Version 2)
Quarter: 2024Q4

REPORT INFORMATION
  Report Type: Report from Study
  Country: ES (occurrence: ES)
  Receive Date: 20241120
  Receipt Date: 20241203
  Transmission Date: 20250114
  Serious: Yes (Death, Other)
  Sender: TAKEDA
  Company Number: ES-TAKEDA-2024TUS116394

PATIENT
  Sex: Female

DRUGS (1)
  1. IXAZOMIB [Suspect]
     Active Substance: IXAZOMIB
     Indication: Primary amyloidosis
     Dosage: 4 MILLIGRAM

REACTIONS (3)
  - Death [Fatal]
  - Respiratory failure [Unknown]
  - Respiratory tract infection [Unknown]

NARRATIVE: CASE EVENT DATE: 20241104
